FAERS Safety Report 26147622 (Version 1)
Quarter: 2025Q4

REPORT INFORMATION
  Report Type: Spontaneous
  Country: JP (occurrence: JP)
  Receive Date: 20251211
  Receipt Date: 20251211
  Transmission Date: 20260118
  Serious: Yes (Other)
  Sender: VIIV
  Company Number: JP-VIIVHC-JP2025JPN157903AA

PATIENT

DRUGS (3)
  1. VOCABRIA [Suspect]
     Active Substance: CABOTEGRAVIR SODIUM
     Indication: HIV infection
     Dosage: UNK
  2. RILPIVIRINE [Suspect]
     Active Substance: RILPIVIRINE
     Dosage: UNK
  3. Adsorbed hepatitis b vaccine [Concomitant]
     Indication: Prophylaxis
     Dosage: UNK

REACTIONS (1)
  - Acute hepatitis B [Unknown]
